FAERS Safety Report 5936030-8 (Version None)
Quarter: 2008Q4

REPORT INFORMATION
  Report Type: 
  Country: None (occurrence: None)
  Receive Date: 20081030
  Receipt Date: 20081029
  Transmission Date: 20090506
  Serious: Yes (Hospitalization, Other)
  Sender: FDA-Public Use
  Company Number: PL-BRISTOL-MYERS SQUIBB COMPANY-13516794

PATIENT
  Age: 69 Year
  Sex: Male
  Weight: 68 kg

DRUGS (6)
  1. CISPLATIN [Suspect]
     Indication: NON-SMALL CELL LUNG CANCER
     Dosage: DOSE REDUCED TO 100MG(56MG/M2),INITIATED ON 16AUG06
     Route: 042
     Dates: start: 20060919, end: 20060919
  2. GEMCITABINE [Suspect]
     Indication: NON-SMALL CELL LUNG CANCER
     Dosage: GEMCITIBINE GIVEN ON DAY ONE AND DAY 8,DOSE REDUCED TO 1690MG(937MG/M2)INITIATED ON 22AUG06
     Route: 042
     Dates: start: 20060919, end: 20060919
  3. ZOFRAN [Concomitant]
     Route: 048
     Dates: start: 20060725
  4. TRAMADOL HCL [Concomitant]
     Route: 048
     Dates: start: 20060829
  5. MEGESTROL ACETATE [Concomitant]
     Route: 048
     Dates: start: 20060817
  6. ONDANSETRON [Concomitant]
     Route: 048
     Dates: start: 20060725

REACTIONS (1)
  - PNEUMONIA [None]
